FAERS Safety Report 5779617-8 (Version None)
Quarter: 2008Q2

REPORT INFORMATION
  Report Type: 
  Country: None (occurrence: None)
  Receive Date: 20080619
  Receipt Date: 20080610
  Transmission Date: 20081010
  Serious: Yes (Other)
  Sender: FDA-Public Use
  Company Number: JP-PFIZER INC-2008049596

PATIENT
  Age: 33 Year
  Sex: Male
  Weight: 75 kg

DRUGS (2)
  1. HALCION [Suspect]
     Dosage: DAILY DOSE:.5MG
     Route: 048
  2. AMOBAN [Suspect]
     Dosage: DAILY DOSE:10MG
     Route: 048

REACTIONS (1)
  - INTENTIONAL OVERDOSE [None]
